FAERS Safety Report 7571667-4 (Version None)
Quarter: 2011Q2

REPORT INFORMATION
  Report Type: 
  Country: None (occurrence: None)
  Receive Date: 20110624
  Receipt Date: 20110622
  Transmission Date: 20111010
  Serious: Yes (Hospitalization)
  Sender: FDA-Public Use
  Company Number: LB-MERCK-1106USA02992

PATIENT
  Age: 85 Year
  Sex: Male

DRUGS (1)
  1. INVANZ [Suspect]
     Indication: INFECTION
     Route: 051

REACTIONS (2)
  - MONOPLEGIA [None]
  - INFECTION [None]
